FAERS Safety Report 7693591-9 (Version None)
Quarter: 2011Q3

REPORT INFORMATION
  Report Type: 
  Country: None (occurrence: None)
  Receive Date: 20110819
  Receipt Date: 20110805
  Transmission Date: 20111222
  Serious: Yes (Hospitalization)
  Sender: FDA-Public Use
  Company Number: PHHY2011BE71609

PATIENT

DRUGS (1)
  1. METHERGINE [Suspect]
     Dosage: UNK UKN, UNK
     Route: 030

REACTIONS (8)
  - WRONG DRUG ADMINISTERED [None]
  - HYPERTENSION [None]
  - TACHYCARDIA [None]
  - CRYING [None]
  - VOMITING [None]
  - IRRITABILITY [None]
  - ALANINE AMINOTRANSFERASE INCREASED [None]
  - ASPARTATE AMINOTRANSFERASE INCREASED [None]
